FAERS Safety Report 7085714-X (Version None)
Quarter: 2010Q4

REPORT INFORMATION
  Report Type: 
  Country: None (occurrence: None)
  Receive Date: 20101105
  Receipt Date: 20101029
  Transmission Date: 20110411
  Serious: Yes (Other)
  Sender: FDA-Public Use
  Company Number: DE-SANOFI-AVENTIS-2010SA054327

PATIENT
  Age: 85 Year
  Sex: Female
  Weight: 81 kg

DRUGS (1)
  1. MULTAQ [Suspect]
     Route: 048
     Dates: start: 20100101

REACTIONS (3)
  - BRONCHITIS [None]
  - PNEUMONITIS [None]
  - WEIGHT DECREASED [None]
